FAERS Safety Report 6154461-0 (Version None)
Quarter: 2009Q2

REPORT INFORMATION
  Report Type: 
  Country: None (occurrence: None)
  Receive Date: 20090414
  Receipt Date: 20090410
  Transmission Date: 20091009
  Serious: Yes (Hospitalization)
  Sender: FDA-Public Use
  Company Number: US-BRISTOL-MYERS SQUIBB COMPANY-14566863

PATIENT
  Age: 75 Year
  Sex: Female

DRUGS (6)
  1. CETUXIMAB [Suspect]
     Indication: COLON CANCER
  2. FLUOROURACIL [Suspect]
     Indication: COLON CANCER
  3. LEUCOVORIN CALCIUM [Suspect]
     Indication: COLON CANCER
  4. OXALIPLATIN [Suspect]
     Indication: COLON CANCER
  5. IRINOTECAN HCL [Suspect]
     Indication: COLON CANCER
  6. CAPECITABINE [Suspect]
     Indication: COLON CANCER

REACTIONS (1)
  - STRESS CARDIOMYOPATHY [None]
